FAERS Safety Report 9641623 (Version 3)
Quarter: 2013Q4

REPORT INFORMATION
  Report Type: Report from Study
  Country: GB (occurrence: GB)
  Receive Date: 20131023
  Receipt Date: 20131209
  Transmission Date: 20140711
  Serious: Yes (Disabling)
  Sender: FDA-Public Use
  Company Number: GB-GLAXOSMITHKLINE-B0932250A

PATIENT
  Age: 73 Year
  Sex: Male

DRUGS (4)
  1. FLUTICASONE FUROATE + VILANTEROL TRIFENATATE [Suspect]
     Indication: CHRONIC OBSTRUCTIVE PULMONARY DISEASE
     Route: 055
     Dates: start: 20121110, end: 20130529
  2. SALMETEROL + FLUTICASONE [Suspect]
     Indication: CHRONIC OBSTRUCTIVE PULMONARY DISEASE
     Route: 055
     Dates: start: 20130708, end: 20131015
  3. BECLOMETASONE [Suspect]
     Indication: CHRONIC OBSTRUCTIVE PULMONARY DISEASE
     Route: 055
     Dates: start: 20130529, end: 20130605
  4. SALMETEROL [Suspect]
     Indication: CHRONIC OBSTRUCTIVE PULMONARY DISEASE
     Route: 055
     Dates: start: 20130605, end: 20130708

REACTIONS (1)
  - Vascular dementia [Not Recovered/Not Resolved]
